FAERS Safety Report 10933075 (Version 1)
Quarter: 2015Q1

REPORT INFORMATION
  Report Type: Spontaneous
  Country: BE (occurrence: BE)
  Receive Date: 20150320
  Receipt Date: 20150320
  Transmission Date: 20150721
  Serious: Yes (Hospitalization)
  Sender: FDA-Public Use
  Company Number: BE-ROCHE-1554298

PATIENT
  Age: 72 Year
  Sex: Male

DRUGS (1)
  1. LUCENTIS [Suspect]
     Active Substance: RANIBIZUMAB
     Indication: AGE-RELATED MACULAR DEGENERATION
     Route: 065

REACTIONS (7)
  - Oxygen saturation decreased [Recovering/Resolving]
  - Cold sweat [Unknown]
  - Emotional distress [Unknown]
  - Dizziness postural [Recovering/Resolving]
  - Eye pain [Recovering/Resolving]
  - Skin reaction [Recovering/Resolving]
  - Intraocular pressure increased [Unknown]
